FAERS Safety Report 5170444-1 (Version None)
Quarter: 2006Q4

REPORT INFORMATION
  Report Type: 
  Country: None (occurrence: None)
  Receive Date: 20061204
  Receipt Date: 20061124
  Transmission Date: 20070319
  Serious: Yes (Other)
  Sender: FDA-Public Use
  Company Number: 2006145203

PATIENT
  Sex: Female

DRUGS (2)
  1. LYRICA [Suspect]
  2. ANASTRAZOLE (ANASTAZOLE) [Concomitant]

REACTIONS (1)
  - OESOPHAGEAL STENOSIS [None]
